FAERS Safety Report 8629315 (Version 2)
Quarter: 2013Q1

REPORT INFORMATION
  Report Type: Spontaneous
  Country: BR (occurrence: BR)
  Receive Date: 20120622
  Receipt Date: 20130226
  Transmission Date: 20140127
  Serious: Yes (Hospitalization)
  Sender: FDA-Public Use
  Company Number: BR-AMGEN-BRASP2012037514

PATIENT
  Age: 48 Year
  Sex: Female
  Weight: 80 kg

DRUGS (10)
  1. ENBREL [Suspect]
     Indication: RHEUMATOID ARTHRITIS
     Dosage: 25 MG, 2X/WEEK
     Route: 058
     Dates: start: 2010, end: 201206
  2. ENBREL [Suspect]
     Dosage: 25 MG, 2 TIMES/WK
     Route: 058
     Dates: start: 201206
  3. PREDNISONE [Concomitant]
     Dosage: UNK, 2X/DAY
     Dates: start: 1993
  4. MAREVAN [Concomitant]
     Indication: THROMBOSIS PROPHYLAXIS
     Dosage: UNK
     Dates: start: 2009
  5. PROPANOLOL                         /00030001/ [Concomitant]
     Indication: BLOOD PRESSURE ABNORMAL
     Dosage: UNK
     Dates: start: 1993
  6. LANSOPRAZOLE [Concomitant]
     Dosage: UNK
  7. LEXOTAN [Concomitant]
     Indication: SLEEP DISORDER
     Dosage: UNK
     Dates: start: 1993
  8. PANTOPRAZOLE [Concomitant]
     Indication: GASTRITIS
     Dosage: UNK
     Dates: start: 1993
  9. INSULIN [Concomitant]
     Indication: DIABETES MELLITUS
     Dosage: UNK
     Dates: start: 1993
  10. METFORMIN [Concomitant]
     Indication: DIABETES MELLITUS
     Dosage: UNK
     Dates: start: 1993

REACTIONS (12)
  - Intestinal haemorrhage [Unknown]
  - Thrombosis [Unknown]
  - Local swelling [Unknown]
  - Arterial occlusive disease [Unknown]
  - Intestinal polyp [Unknown]
  - Asthenia [Unknown]
  - Haemorrhage [Unknown]
  - Syncope [Unknown]
  - Blood pressure decreased [Unknown]
  - Weight decreased [Unknown]
  - Abdominal pain [Unknown]
  - Diarrhoea [Unknown]
